FAERS Safety Report 12158649 (Version 1)
Quarter: 2016Q1

REPORT INFORMATION
  Report Type: Spontaneous
  Country: US (occurrence: None)
  Receive Date: 20160307
  Receipt Date: 20160307
  Transmission Date: 20160526
  Serious: No
  Sender: FDA-Public Use
  Company Number: None

PATIENT
  Age: 68 Year
  Sex: Male
  Weight: 77.11 kg

DRUGS (4)
  1. MULTIVITAMIN [Concomitant]
     Active Substance: VITAMINS
  2. SAW PALMETTA [Concomitant]
  3. CELECOXIB CAP. 200MG LUPIN PHAR. [Suspect]
     Active Substance: CELECOXIB
     Indication: ARTHRALGIA
     Route: 048
     Dates: start: 20160218, end: 20160220
  4. RESVERATROL [Concomitant]
     Active Substance: RESVERATROL

REACTIONS (10)
  - Abdominal distension [None]
  - Heart rate increased [None]
  - Insomnia [None]
  - Malaise [None]
  - Blood pressure increased [None]
  - Feeling hot [None]
  - Restlessness [None]
  - Abdominal discomfort [None]
  - Product substitution issue [None]
  - Gastric disorder [None]

NARRATIVE: CASE EVENT DATE: 20160218
